FAERS Safety Report 4523252-6 (Version None)
Quarter: 2004Q4

REPORT INFORMATION
  Report Type: 
  Country: None (occurrence: None)
  Receive Date: 20041209
  Receipt Date: 20041209
  Transmission Date: 20050328
  Serious: No
  Sender: FDA-Public Use
  Company Number: None

PATIENT
  Age: 46 Year
  Sex: Female
  Weight: 65 kg

DRUGS (9)
  1. VORICONAZOLE [Suspect]
     Indication: FEBRILE NEUTROPENIA
     Dosage: 390 MG IV Q 12 H
     Route: 042
     Dates: start: 20041111, end: 20041111
  2. VORICONAZOLE [Suspect]
     Dosage: 260 MG IV Q 12 H
     Route: 042
     Dates: start: 20041112, end: 20041112
  3. CITALOPRAM [Concomitant]
  4. FILGRASTIM [Concomitant]
  5. TRAZODONE HCL [Concomitant]
  6. URSODIOL [Concomitant]
  7. ACYCLOVIR [Concomitant]
  8. CEFEPIME [Concomitant]
  9. LANSOPRAZOLE [Concomitant]

REACTIONS (1)
  - HALLUCINATION [None]
